FAERS Safety Report 9364110 (Version 1)
Quarter: 2013Q2

REPORT INFORMATION
  Report Type: Spontaneous
  Country: GB (occurrence: None)
  Receive Date: 20130618
  Receipt Date: 20130618
  Transmission Date: 20140414
  Serious: Yes (Disabling, Other)
  Sender: FDA-Public Use
  Company Number: 1747110

PATIENT
  Age: 88 Year
  Sex: Male
  Weight: 39.01 kg

DRUGS (2)
  1. METHOTREXATE [Suspect]
     Indication: ARTHRITIS
     Dates: start: 20110410, end: 20120816
  2. FOLIC ACID [Suspect]

REACTIONS (3)
  - Ototoxicity [None]
  - Sudden hearing loss [None]
  - Sudden hearing loss [None]
